FAERS Safety Report 13748639 (Version 1)
Quarter: 2017Q3

REPORT INFORMATION
  Report Type: Spontaneous
  Country: TR (occurrence: TR)
  Receive Date: 20170713
  Receipt Date: 20170713
  Transmission Date: 20171127
  Serious: Yes (Hospitalization)
  Sender: FDA-Public Use
  Company Number: TR-SUN PHARMACEUTICAL INDUSTRIES LTD-2016R1-117098

PATIENT
  Age: 53 Year
  Sex: Male

DRUGS (2)
  1. PENTAZOCINE [Suspect]
     Active Substance: PENTAZOCINE
     Indication: MIGRAINE
     Dosage: SCALED UP TO 20 AMPULES PER DAY
     Route: 051
  2. PENTAZOCINE [Suspect]
     Active Substance: PENTAZOCINE
     Dosage: 10 30 MG AMPULES
     Route: 030

REACTIONS (7)
  - Drug abuse [Recovered/Resolved]
  - Wound necrosis [Recovered/Resolved]
  - Withdrawal syndrome [Unknown]
  - Feeling guilty [Unknown]
  - Depressed mood [Unknown]
  - Overdose [Recovered/Resolved]
  - Wound infection [Recovered/Resolved]
